FAERS Safety Report 6399257-X (Version None)
Quarter: 2009Q4

REPORT INFORMATION
  Report Type: 
  Country: None (occurrence: None)
  Receive Date: 20091014
  Receipt Date: 20071219
  Transmission Date: 20100525
  Serious: Yes (Hospitalization, Other)
  Sender: FDA-Public Use
  Company Number: US-ASTRAZENECA-2006UW26060

PATIENT
  Age: 15513 Day
  Sex: Male
  Weight: 77.6 kg

DRUGS (17)
  1. SEROQUEL [Suspect]
     Indication: SCHIZOPHRENIA
     Dosage: 25-100 MG
     Route: 048
     Dates: start: 20040609
  2. SEROQUEL [Suspect]
     Indication: BIPOLAR DISORDER
     Dosage: 25-100 MG
     Route: 048
     Dates: start: 20040609
  3. SEROQUEL [Suspect]
     Indication: DEPRESSION
     Dosage: 25-100 MG
     Route: 048
     Dates: start: 20040609
  4. SEROQUEL [Suspect]
     Dosage: 200 MG-400 MG
     Route: 048
  5. SEROQUEL [Suspect]
     Dosage: 200 MG-400 MG
     Route: 048
  6. SEROQUEL [Suspect]
     Dosage: 200 MG-400 MG
     Route: 048
  7. HALDOL [Concomitant]
     Dates: start: 20050404
  8. THORAZINE [Concomitant]
  9. ZYPREXA [Concomitant]
  10. DEPAKOTE [Concomitant]
  11. PAXIL [Concomitant]
  12. PROZAC [Concomitant]
     Dates: start: 20050404
  13. DILANTIN [Concomitant]
     Indication: CONVULSION
     Dosage: 200-500 MG
     Route: 048
     Dates: start: 20040609
  14. PROTONIX [Concomitant]
     Dates: start: 20050404
  15. VITAMINS [Concomitant]
     Dates: start: 20050404
  16. ATIVAN [Concomitant]
     Dates: start: 20050408
  17. INSULIN [Concomitant]
     Dosage: 70/30 7-40 UNITS
     Dates: start: 20040609

REACTIONS (13)
  - ACTIVITIES OF DAILY LIVING IMPAIRED [None]
  - BRAIN INJURY [None]
  - DEMENTIA [None]
  - DIABETES MELLITUS [None]
  - DIABETES MELLITUS INADEQUATE CONTROL [None]
  - DIABETIC COMA [None]
  - DIABETIC KETOACIDOSIS [None]
  - FALL [None]
  - HYPOGLYCAEMIA [None]
  - METABOLIC ACIDOSIS [None]
  - RENAL FAILURE ACUTE [None]
  - SOCIAL AVOIDANT BEHAVIOUR [None]
  - SUPRAVENTRICULAR TACHYCARDIA [None]
